FAERS Safety Report 8268840-9 (Version None)
Quarter: 2012Q2

REPORT INFORMATION
  Report Type: 
  Country: None (occurrence: None)
  Receive Date: 20120409
  Receipt Date: 20120409
  Transmission Date: 20120825
  Serious: Yes (Disabling)
  Sender: FDA-Public Use
  Company Number: None

PATIENT
  Age: 64 Year
  Sex: Female
  Weight: 63.502 kg

DRUGS (1)
  1. LEVAQUIN [Suspect]

REACTIONS (2)
  - ABASIA [None]
  - TENDONITIS [None]
